FAERS Safety Report 7605368-0 (Version None)
Quarter: 2011Q3

REPORT INFORMATION
  Report Type: 
  Country: None (occurrence: None)
  Receive Date: 20110713
  Receipt Date: 20110701
  Transmission Date: 20111222
  Serious: Yes (Hospitalization, Other)
  Sender: FDA-Public Use
  Company Number: FR-ELI_LILLY_AND_COMPANY-FR201107000067

PATIENT
  Sex: Female

DRUGS (7)
  1. OXAZEPAM [Concomitant]
     Dosage: 10 MG, TID
     Route: 048
  2. MEMANTINE HYDROCHLORIDE [Concomitant]
     Dosage: 10 MG, QD
     Route: 048
     Dates: start: 20101201
  3. PANTOPRAZOLE [Concomitant]
     Dosage: 20 MG, QD
     Route: 048
  4. CYMBALTA [Suspect]
     Dosage: 60 MG, QD
     Route: 048
     Dates: start: 20110516
  5. BISOPROLOL FUMARATE [Concomitant]
     Dosage: 2.5 MG, QD
     Route: 048
     Dates: start: 20110201
  6. LASIX [Concomitant]
     Dosage: 40 MG, QD
     Route: 048
  7. COUMADIN [Concomitant]
     Dosage: 2 MG, QD
     Route: 048
     Dates: start: 20110116, end: 20110501

REACTIONS (3)
  - DYSARTHRIA [None]
  - CEREBROVASCULAR ACCIDENT [None]
  - SOMNOLENCE [None]
